FAERS Safety Report 6442127-9 (Version None)
Quarter: 2009Q4

REPORT INFORMATION
  Report Type: 
  Country: None (occurrence: None)
  Receive Date: 20091116
  Receipt Date: 20091104
  Transmission Date: 20100525
  Serious: No
  Sender: FDA-Public Use
  Company Number: PHHY2009CA44970

PATIENT
  Sex: Male

DRUGS (6)
  1. ALISKIREN ALI+ [Suspect]
     Indication: HYPERTENSION
     Dosage: 150 MG/DAY
     Route: 048
     Dates: start: 20090602, end: 20090624
  2. ARA-C [Concomitant]
  3. DIURETICS [Concomitant]
  4. ASAPHEN [Concomitant]
  5. PROPRANOLOL [Concomitant]
     Dosage: 40 MG DAILY
  6. DIOVAN HCT [Concomitant]

REACTIONS (4)
  - ASTHENIA [None]
  - DRUG INEFFECTIVE [None]
  - FATIGUE [None]
  - TACHYCARDIA [None]
